FAERS Safety Report 10227955 (Version 1)
Quarter: 2014Q2

REPORT INFORMATION
  Report Type: Spontaneous
  Country: US (occurrence: None)
  Receive Date: 20140609
  Receipt Date: 20140609
  Transmission Date: 20141212
  Serious: Yes (Disabling)
  Sender: FDA-Public Use
  Company Number: None

PATIENT
  Age: 28 Year
  Sex: Male
  Weight: 68.04 kg

DRUGS (2)
  1. CIPROFLOXACIN [Suspect]
     Indication: PROSTATITIS
     Route: 048
     Dates: start: 20140529, end: 20140606
  2. DOXAZOSIN MESYLATE [Suspect]
     Indication: PROSTATITIS
     Route: 048
     Dates: start: 20140529, end: 20140606

REACTIONS (3)
  - Tendonitis [None]
  - Activities of daily living impaired [None]
  - Condition aggravated [None]
